FAERS Safety Report 4984286-0 (Version None)
Quarter: 2006Q2

REPORT INFORMATION
  Report Type: 
  Country: None (occurrence: None)
  Receive Date: 20060427
  Receipt Date: 20060420
  Transmission Date: 20061013
  Serious: Yes (Hospitalization)
  Sender: FDA-Public Use
  Company Number: PHBS2006BE05780

PATIENT
  Age: 10 Year
  Sex: Female

DRUGS (2)
  1. SERETIDE EVOHALER [Concomitant]
  2. ELIDEL [Suspect]
     Indication: DERMATITIS ATOPIC
     Route: 061
     Dates: start: 20050101, end: 20050101

REACTIONS (2)
  - HODGKIN'S DISEASE [None]
  - LYMPHADENOPATHY [None]
